FAERS Safety Report 23990952 (Version 2)
Quarter: 2024Q3

REPORT INFORMATION
  Report Type: Spontaneous
  Country: US (occurrence: US)
  Receive Date: 20240619
  Receipt Date: 20240810
  Transmission Date: 20241016
  Serious: No
  Sender: SANOFI AVENTIS
  Company Number: US-SA-SAC20240617000309

PATIENT
  Age: 29 Year
  Sex: Female
  Weight: 51.25 kg

DRUGS (4)
  1. DUPIXENT [Suspect]
     Active Substance: DUPILUMAB
     Indication: Dermatitis atopic
     Dosage: 300 MG, QOW
     Route: 058
     Dates: start: 202312
  2. AMMONIUM LACTATE [Concomitant]
     Active Substance: AMMONIUM LACTATE
     Dosage: UNK
  3. MOMETASONE FUROATE [Concomitant]
     Active Substance: MOMETASONE FUROATE
     Dosage: UNK
  4. ZAFEMY [Concomitant]
     Active Substance: ETHINYL ESTRADIOL\NORELGESTROMIN
     Dosage: 150-35/24H PATCH TDWK

REACTIONS (4)
  - Stress [Unknown]
  - Alopecia [Recovering/Resolving]
  - Pruritus [Unknown]
  - Product dose omission issue [Unknown]
